FAERS Safety Report 7852178-5 (Version None)
Quarter: 2011Q4

REPORT INFORMATION
  Report Type: 
  Country: None (occurrence: None)
  Receive Date: 20111026
  Receipt Date: 20111024
  Transmission Date: 20120403
  Serious: Yes (Death)
  Sender: FDA-Public Use
  Company Number: IE-PFIZER INC-2011215266

PATIENT
  Age: 68 Year
  Sex: Male
  Weight: 87 kg

DRUGS (18)
  1. LIPITOR [Suspect]
     Dosage: UNK
  2. FOSINOPRIL SODIUM [Concomitant]
     Dosage: 20 MG, 2X/DAY
  3. NEBIVOLOL [Concomitant]
     Dosage: 5 MG, DAILY
  4. HUMALOG [Concomitant]
     Dosage: 3ML (100 UNITS/ ML), AS DIRECTED
  5. PAROXETINE HYDROCHLORIDE [Concomitant]
     Dosage: 30 MG, DAILY
  6. TRAMADOL HYDROCHLORIDE [Concomitant]
     Dosage: 50 MG, ONE OF TWO THREE TIMES DAILY AS REQUIRED
  7. IKOREL [Concomitant]
     Indication: ANGINA PECTORIS
     Dosage: 20 MG, 2X/DAY
  8. PAROXETINE HYDROCHLORIDE [Concomitant]
     Dosage: UNK
  9. PREGABALIN [Concomitant]
     Dosage: 100 MG, 2X/DAY
  10. NAPROXEN [Concomitant]
     Dosage: 500 MG, 2X/DAY
  11. ATORVASTATIN [Concomitant]
     Dosage: 80 MG, 1X/DAY
  12. DIGOXIN [Suspect]
     Dosage: 125 UNK, UNK
     Dates: start: 20110831
  13. CLOPIDOGREL [Concomitant]
     Dosage: 75 MG, 1X/DAY
  14. LEVOTHYROXINE [Concomitant]
     Dosage: 50 MG, 1X/DAY
  15. METFORMIN HYDROCHLORIDE [Concomitant]
     Dosage: 850 MG, 3X/DAY
  16. FENOFIBRATE [Concomitant]
     Dosage: 200 MG, DAILY
  17. NAFTIDROFURYL OXALATE [Concomitant]
     Dosage: 200 MG, 3X/DAY
  18. LANSOPRAZOLE [Concomitant]
     Dosage: 30 MG, 1X/DAY

REACTIONS (1)
  - MYOCARDIAL INFARCTION [None]
